FAERS Safety Report 21763815 (Version 2)
Quarter: 2022Q4

REPORT INFORMATION
  Report Type: Spontaneous
  Country: US (occurrence: US)
  Receive Date: 20221222
  Receipt Date: 20221222
  Transmission Date: 20230112
  Serious: No
  Sender: FDA-Public Use
  Company Number: US-ALKERMES INC.-ALK-2022-006083

PATIENT
  Age: 38 Year
  Sex: Female
  Weight: 105.22 kg

DRUGS (1)
  1. VIVITROL [Suspect]
     Active Substance: NALTREXONE
     Indication: Alcoholism
     Dosage: 380 MILLIGRAM, QMO
     Route: 058
     Dates: start: 20221219

REACTIONS (3)
  - Incorrect route of product administration [Unknown]
  - Injection site reaction [Unknown]
  - Injection site discharge [Unknown]

NARRATIVE: CASE EVENT DATE: 20221219
